FAERS Safety Report 13557197 (Version 1)
Quarter: 2017Q2

REPORT INFORMATION
  Report Type: Spontaneous
  Country: US (occurrence: US)
  Receive Date: 20170518
  Receipt Date: 20170518
  Transmission Date: 20170830
  Serious: Yes (Other)
  Sender: FDA-Public Use
  Company Number: US-BAYER-2017-089292

PATIENT
  Age: 63 Year
  Sex: Male

DRUGS (2)
  1. PREDNISON [Suspect]
     Active Substance: PREDNISONE
  2. ACETYLSALICYLIC ACID({=100 MG) [Suspect]
     Active Substance: ASPIRIN

REACTIONS (2)
  - Activated partial thromboplastin time prolonged [None]
  - Muscle haemorrhage [None]
